FAERS Safety Report 8861290 (Version 1)
Quarter: 2012Q4

REPORT INFORMATION
  Report Type: 
  Country: US (occurrence: US)
  Receive Date: 20121026
  Receipt Date: 20121026
  Transmission Date: 20130627
  Serious: Yes (Other)
  Sender: FDA-Public Use
  Company Number: US-PFIZER INC-2012265682

PATIENT
  Age: 44 Year
  Sex: Female

DRUGS (2)
  1. XALKORI [Suspect]
     Indication: LUNG NEOPLASM MALIGNANT
     Dosage: 250 mg, 2x/day
     Dates: start: 201204
  2. ASPIRIN/BABY ASPIRIN [Concomitant]
     Indication: ANTICOAGULANT THERAPY
     Dosage: UNK

REACTIONS (10)
  - Electrocardiogram QT prolonged [Unknown]
  - Liver function test abnormal [Unknown]
  - Vitreous floaters [Unknown]
  - Photophobia [Unknown]
  - Vision blurred [Unknown]
  - Constipation [Unknown]
  - Joint swelling [Unknown]
  - Oedema peripheral [Unknown]
  - Dizziness [Unknown]
  - Visual impairment [Recovering/Resolving]
